FAERS Safety Report 24432644 (Version 1)
Quarter: 2024Q4

REPORT INFORMATION
  Report Type: Spontaneous
  Country: CN (occurrence: CN)
  Receive Date: 20241014
  Receipt Date: 20241014
  Transmission Date: 20250115
  Serious: Yes (Death)
  Sender: STERISCIENCE PTE
  Company Number: CN-STERISCIENCE B.V.-2024-ST-001616

PATIENT

DRUGS (4)
  1. GANCICLOVIR SODIUM [Suspect]
     Active Substance: GANCICLOVIR SODIUM
     Indication: Antiviral prophylaxis
     Dosage: UNK
     Route: 065
  2. SULFAMETHOXAZOLE [Concomitant]
     Active Substance: SULFAMETHOXAZOLE
     Indication: Antibiotic prophylaxis
     Dosage: UNK
     Route: 065
  3. LEVOFLOXACIN [Concomitant]
     Active Substance: LEVOFLOXACIN
     Indication: Antibiotic prophylaxis
     Route: 065
  4. RITUXIMAB [Concomitant]
     Active Substance: RITUXIMAB
     Indication: Epstein-Barr viraemia
     Dosage: UNK
     Route: 065

REACTIONS (2)
  - Cytomegalovirus infection [Fatal]
  - Drug ineffective [Fatal]
